FAERS Safety Report 11656465 (Version 1)
Quarter: 2015Q4

REPORT INFORMATION
  Report Type: Spontaneous
  Country: TR (occurrence: TR)
  Receive Date: 20151023
  Receipt Date: 20151023
  Transmission Date: 20160304
  Serious: Yes (Other)
  Sender: FDA-Public Use
  Company Number: TR-PERRIGO-15TR010812

PATIENT
  Age: 12 Month
  Sex: Female

DRUGS (2)
  1. ACETAMINOPHEN 120MG 579 [Suspect]
     Active Substance: ACETAMINOPHEN
     Indication: DRUG PROVOCATION TEST
     Dosage: DIVIDED DOSES UP TO 200 MG
     Route: 065
  2. ACETAMINOPHEN 120MG 579 [Suspect]
     Active Substance: ACETAMINOPHEN
     Indication: PRODUCT USED FOR UNKNOWN INDICATION
     Dosage: UNK
     Route: 065

REACTIONS (4)
  - Rash maculo-papular [Unknown]
  - Hypersensitivity [Unknown]
  - Angioedema [Unknown]
  - Urticaria [Unknown]
